FAERS Safety Report 15358554 (Version 6)
Quarter: 2020Q4

REPORT INFORMATION
  Report Type: Report from Study
  Country: BR (occurrence: BR)
  Receive Date: 20180906
  Receipt Date: 20201224
  Transmission Date: 20210113
  Serious: Yes (Hospitalization, Other)
  Sender: FDA-Public Use
  Company Number: PHHY2018BR088356

PATIENT
  Age: 65 Year
  Sex: Female
  Weight: 92 kg

DRUGS (3)
  1. COSENTYX [Suspect]
     Active Substance: SECUKINUMAB
     Indication: ANKYLOSING SPONDYLITIS
     Dosage: 150 MG, QMO
     Route: 058
     Dates: start: 20171017
  2. COSENTYX [Suspect]
     Active Substance: SECUKINUMAB
     Dosage: 150 MG, QMO
     Route: 058
     Dates: start: 20171110
  3. COSENTYX [Suspect]
     Active Substance: SECUKINUMAB
     Dosage: UNK, ABOUT 4 YEARS AGO
     Route: 065

REACTIONS (28)
  - Urine abnormality [Recovered/Resolved]
  - Dysuria [Unknown]
  - Cardiac dysfunction [Unknown]
  - Renal cyst [Unknown]
  - Blood urine present [Not Recovered/Not Resolved]
  - Peripheral vascular disorder [Unknown]
  - Pyrexia [Recovered/Resolved]
  - Cataract [Recovered/Resolved]
  - Gait disturbance [Not Recovered/Not Resolved]
  - Malaise [Recovered/Resolved]
  - Urine abnormality [Unknown]
  - Concomitant disease aggravated [Recovered/Resolved]
  - Rheumatic disorder [Not Recovered/Not Resolved]
  - Swelling [Unknown]
  - Urinary tract infection [Recovering/Resolving]
  - Urinary tract infection [Recovered/Resolved]
  - Urinary tract infection [Recovered/Resolved]
  - Vein rupture [Unknown]
  - Delirium [Recovered/Resolved]
  - Eye pain [Unknown]
  - Memory impairment [Not Recovered/Not Resolved]
  - Pain in extremity [Unknown]
  - Illness [Recovered/Resolved]
  - Urine odour abnormal [Recovered/Resolved]
  - Ankylosing spondylitis [Unknown]
  - Hypokinesia [Not Recovered/Not Resolved]
  - Visual impairment [Unknown]
  - Pain [Recovered/Resolved]

NARRATIVE: CASE EVENT DATE: 201801
